FAERS Safety Report 6895699-4 (Version None)
Quarter: 2010Q3

REPORT INFORMATION
  Report Type: 
  Country: None (occurrence: None)
  Receive Date: 20100802
  Receipt Date: 20100730
  Transmission Date: 20110219
  Serious: Yes (Hospitalization)
  Sender: FDA-Public Use
  Company Number: US-JNJFOC-20100402826

PATIENT
  Sex: Male
  Weight: 107.5 kg

DRUGS (2)
  1. INVEGA SUSTENNA [Suspect]
     Indication: SCHIZOPHRENIA, PARANOID TYPE
     Route: 030
  2. ARICEPT [Concomitant]
     Indication: DEMENTIA

REACTIONS (1)
  - HYPERGLYCAEMIA [None]
